FAERS Safety Report 4335526-2 (Version None)
Quarter: 2004Q2

REPORT INFORMATION
  Report Type: 
  Country: None (occurrence: None)
  Receive Date: 20040406
  Receipt Date: 20040323
  Transmission Date: 20050107
  Serious: Yes (Hospitalization)
  Sender: FDA-Public Use
  Company Number: 04P-163-0254348-00

PATIENT
  Age: 67 Year
  Sex: Female

DRUGS (5)
  1. HUMIRA [Suspect]
     Indication: RHEUMATOID ARTHRITIS
     Dosage: 40 MG, 1 IN 2 WK; SUBCUTANEOUS
     Route: 058
     Dates: start: 20030401, end: 20031201
  2. METHOTREXATE [Concomitant]
  3. PREDNISONE [Concomitant]
  4. QUINAPRIL HYDROCHLORIDE [Concomitant]
  5. HYDROCODONE [Concomitant]

REACTIONS (6)
  - HERPES ZOSTER OPHTHALMIC [None]
  - INFECTION [None]
  - LOCALISED INFECTION [None]
  - PAIN IN EXTREMITY [None]
  - RHEUMATOID NODULE [None]
  - WHITE BLOOD CELL COUNT INCREASED [None]
